FAERS Safety Report 6805148-X (Version None)
Quarter: 2010Q2

REPORT INFORMATION
  Report Type: 
  Country: None (occurrence: None)
  Receive Date: 20100628
  Receipt Date: 20071203
  Transmission Date: 20101027
  Serious: No
  Sender: FDA-Public Use
  Company Number: US-PFIZER INC-2007052916

PATIENT
  Sex: Male
  Weight: 70.454 kg

DRUGS (6)
  1. XALATAN [Suspect]
     Indication: GLAUCOMA
     Dates: start: 20070528
  2. AVODART [Concomitant]
  3. UROXATRAL [Concomitant]
  4. ZOCOR [Concomitant]
  5. FLUTEX ^PHARMADOR^ [Concomitant]
  6. ARTIFICIAL TEARS [Concomitant]

REACTIONS (2)
  - EYE PAIN [None]
  - FATIGUE [None]
